FAERS Safety Report 12166334 (Version 1)
Quarter: 2016Q1

REPORT INFORMATION
  Report Type: Spontaneous
  Country: US (occurrence: US)
  Receive Date: 20160309
  Receipt Date: 20160309
  Transmission Date: 20160526
  Serious: No
  Sender: FDA-Public Use
  Company Number: US-GREER LABORATORIES, INC.-1048867

PATIENT
  Age: 45 Year
  Sex: Female
  Weight: 125.91 kg

DRUGS (17)
  1. INSECTS (WHOLE BODY) COCKROACH, AMERICAN PERIPLANETA AMERICANA [Suspect]
     Active Substance: PERIPLANETA AMERICANA
     Route: 060
     Dates: start: 20150423, end: 20151230
  2. POLLENS - WEEDS AND GARDEN PLANTS, RAGWEED, MIXED AMBROSIA [Suspect]
     Active Substance: AMBROSIA ARTEMISIIFOLIA POLLEN\AMBROSIA TRIFIDA POLLEN
     Route: 060
     Dates: start: 20150423, end: 20151230
  3. STANDARDIZED CAT HAIR [Suspect]
     Active Substance: FELIS CATUS HAIR
     Route: 060
     Dates: start: 20150423, end: 20151230
  4. POLLENS - TREES, MAPLE, HARD ACER SACCHARUM [Suspect]
     Active Substance: ACER SACCHARUM POLLEN
     Route: 060
     Dates: start: 20150423, end: 20151230
  5. STANDARDIZED MITE, DERMATOPHAGOIDES FARINAE [Suspect]
     Active Substance: DERMATOPHAGOIDES FARINAE
     Route: 060
     Dates: start: 20150423, end: 20151230
  6. POLLENS - WEEDS AND GARDEN PLANTS, PIGWEED, ROUGH REDROOT AMARANTHUS RETROFLEXUS [Suspect]
     Active Substance: AMARANTHUS RETROFLEXUS POLLEN
     Route: 060
     Dates: start: 20150423, end: 20151230
  7. STANDARDIZED TIMOTHY GRASS [Suspect]
     Active Substance: PHLEUM PRATENSE POLLEN
     Route: 060
     Dates: start: 20150423, end: 20151230
  8. POLLENS - TREES, COTTONWOOD, COMMON POPULUS DELTOIDES [Suspect]
     Active Substance: POPULUS DELTOIDES POLLEN
     Route: 060
     Dates: start: 20150423, end: 20151230
  9. MOLDS, RUSTS AND SMUTS, BOTRYTIS CINEREA [Suspect]
     Active Substance: BOTRYTIS CINEREA
     Route: 060
     Dates: start: 20150423, end: 20151223
  10. POLLENS - GRASSES, BAHIA GRASS PASPALUM NOTATUM [Suspect]
     Active Substance: PASPALUM NOTATUM POLLEN
     Indication: RHINITIS ALLERGIC
     Route: 060
     Dates: start: 20150423, end: 20151230
  11. MOLDS, RUSTS AND SMUTS, ASPERGILLUS FUMIGATUS [Suspect]
     Active Substance: ASPERGILLUS FUMIGATUS
     Route: 060
     Dates: start: 20150423, end: 20151230
  12. ALTERNARIA ALTERNATA. [Suspect]
     Active Substance: ALTERNARIA ALTERNATA
     Route: 060
     Dates: start: 20150423, end: 20151230
  13. WHITE BIRCH [Suspect]
     Active Substance: BETULA POPULIFOLIA POLLEN
     Route: 060
     Dates: start: 20150423, end: 20151230
  14. STANDARDIZED MITE, DERMATOPHAGOIDES PTERONYSSINUS [Suspect]
     Active Substance: DERMATOPHAGOIDES PTERONYSSINUS
     Route: 060
     Dates: start: 20150423, end: 20151230
  15. DOG EPITHELIUM [Suspect]
     Active Substance: CANIS LUPUS FAMILIARIS SKIN
     Route: 060
     Dates: start: 20150423, end: 20151230
  16. POLLENS - TREES, OAK, RED QUERCUS RUBRA [Suspect]
     Active Substance: QUERCUS RUBRA POLLEN
     Route: 060
     Dates: start: 20150423, end: 20151230
  17. POLLENS - TREES, WALNUT, BLACK JUGLANS NIGRA [Suspect]
     Active Substance: JUGLANS NIGRA POLLEN
     Route: 060
     Dates: start: 20150423, end: 20151230

REACTIONS (2)
  - Off label use [None]
  - Glossodynia [Unknown]
